FAERS Safety Report 7767346-0 (Version None)
Quarter: 2011Q3

REPORT INFORMATION
  Report Type: 
  Country: None (occurrence: None)
  Receive Date: 20110922
  Receipt Date: 20110920
  Transmission Date: 20111222
  Serious: Yes (Death, Other)
  Sender: FDA-Public Use
  Company Number: AU-B.I. PHARMACEUTICALS,INC./RIDGEFIELD-2011-AU-01493AU

PATIENT
  Age: 60 Year
  Sex: Male
  Weight: 119 kg

DRUGS (6)
  1. PRADAXA [Suspect]
     Dosage: 220 MG
  2. AMIODARONE HCL [Concomitant]
  3. PANADOL OSTEO [Concomitant]
  4. COAD INHALERS [Concomitant]
     Indication: CHRONIC OBSTRUCTIVE PULMONARY DISEASE
  5. IV ANAESTHESIA [Concomitant]
     Indication: SURGERY
  6. NEXIUM [Concomitant]

REACTIONS (2)
  - RENAL FAILURE [None]
  - NECROTISING FASCIITIS [None]
